FAERS Safety Report 16847796 (Version 1)
Quarter: 2019Q3

REPORT INFORMATION
  Report Type: Other
  Country: US (occurrence: US)
  Receive Date: 20190924
  Receipt Date: 20190924
  Transmission Date: 20191005
  Serious: No
  Sender: FDA-Public Use
  Company Number: US-ACORDA-ACO_160155_2019

PATIENT
  Age: 65 Year
  Sex: Male

DRUGS (1)
  1. INBRIJA [Suspect]
     Active Substance: LEVODOPA
     Indication: PARKINSON^S DISEASE
     Dosage: 84 MG PRN
     Dates: start: 201906, end: 20190709

REACTIONS (12)
  - Muscle spasms [Unknown]
  - Irritability [Unknown]
  - Muscle rigidity [Unknown]
  - Musculoskeletal stiffness [Unknown]
  - Headache [Unknown]
  - Visual impairment [Unknown]
  - Tremor [Unknown]
  - Device difficult to use [Unknown]
  - Insomnia [Unknown]
  - Condition aggravated [Unknown]
  - Nausea [Unknown]
  - Dizziness [Unknown]

NARRATIVE: CASE EVENT DATE: 201906
